FAERS Safety Report 7247362-8 (Version None)
Quarter: 2011Q1

REPORT INFORMATION
  Report Type: 
  Country: None (occurrence: None)
  Receive Date: 20110127
  Receipt Date: 20110121
  Transmission Date: 20110831
  Serious: Yes (Other)
  Sender: FDA-Public Use
  Company Number: US-PFIZER INC-2011014637

PATIENT
  Sex: Female
  Weight: 53.061 kg

DRUGS (10)
  1. CHANTIX [Suspect]
     Indication: SMOKING CESSATION THERAPY
     Dosage: 1 MG, 2X/DAY
     Route: 048
     Dates: start: 20110112, end: 20110120
  2. NEURONTIN [Concomitant]
     Indication: NEURALGIA
     Dosage: 300 MG, 5X/DAY
     Route: 048
  3. DIAZEPAM [Concomitant]
     Indication: TREMOR
     Dosage: 50 MG, 3X/DAY
     Route: 048
  4. OXYCODONE [Concomitant]
     Indication: INTERVERTEBRAL DISC PROTRUSION
  5. TRAMADOL [Concomitant]
     Indication: INTERVERTEBRAL DISC PROTRUSION
  6. TRAMADOL [Concomitant]
     Indication: PAIN
     Dosage: 50MG PRN
  7. ZOLOFT [Concomitant]
     Indication: DEPRESSION
     Route: 048
  8. IBUPROFEN [Concomitant]
     Indication: NEURALGIA
     Dosage: 400 MG, AS NEEDED
     Route: 048
  9. OXYCODONE [Concomitant]
     Indication: PAIN
     Dosage: 10/325 MG PRN
     Route: 048
  10. TRAZODONE [Concomitant]
     Indication: SLEEP DISORDER
     Dosage: 150 MG, 1X/DAY
     Route: 048

REACTIONS (7)
  - DIZZINESS [None]
  - SOMNOLENCE [None]
  - CONSTIPATION [None]
  - MALAISE [None]
  - FALL [None]
  - INJURY [None]
  - NAUSEA [None]
